FAERS Safety Report 5698271-7 (Version None)
Quarter: 2008Q2

REPORT INFORMATION
  Report Type: 
  Country: None (occurrence: None)
  Receive Date: 20080408
  Receipt Date: 20080328
  Transmission Date: 20081010
  Serious: Yes (Other)
  Sender: FDA-Public Use
  Company Number: US-PFIZER INC-2008028627

PATIENT
  Sex: Male
  Weight: 79.545 kg

DRUGS (4)
  1. VIAGRA [Suspect]
     Indication: ERECTILE DYSFUNCTION
     Dates: start: 20050101, end: 20080201
  2. TOPROL-XL [Concomitant]
  3. LIPITOR [Concomitant]
  4. ACCUPRIL [Concomitant]

REACTIONS (3)
  - HEART VALVE REPLACEMENT [None]
  - VISION BLURRED [None]
  - VISUAL FIELD DEFECT [None]
